FAERS Safety Report 22618213 (Version 1)
Quarter: 2023Q2

REPORT INFORMATION
  Report Type: Spontaneous
  Country: None (occurrence: CN)
  Receive Date: 20230620
  Receipt Date: 20230620
  Transmission Date: 20230722
  Serious: Yes (Other)
  Sender: FDA-Public Use
  Company Number: CN-Jiangsu Hengrui Medicine Co., Ltd.-2142887

PATIENT
  Age: 59 Year
  Sex: Female

DRUGS (4)
  1. CYCLOPHOSPHAMIDE [Suspect]
     Active Substance: CYCLOPHOSPHAMIDE
     Indication: Acute lymphocytic leukaemia
     Route: 041
  2. VINCRISTINE [Suspect]
     Active Substance: VINCRISTINE
     Route: 041
  3. IDARUBICIN [Suspect]
     Active Substance: IDARUBICIN
  4. PREDNISONE [Suspect]
     Active Substance: PREDNISONE
     Route: 041

REACTIONS (3)
  - Myelosuppression [Unknown]
  - Bronchopulmonary aspergillosis [Unknown]
  - Haematological infection [Unknown]
